FAERS Safety Report 24559628 (Version 3)
Quarter: 2024Q4

REPORT INFORMATION
  Report Type: Report from Study
  Country: US (occurrence: US)
  Receive Date: 20241029
  Receipt Date: 20241221
  Transmission Date: 20250115
  Serious: Yes (Other)
  Sender: ABBVIE
  Company Number: US-ABBVIE-5979103

PATIENT
  Age: 76 Year
  Sex: Male

DRUGS (2)
  1. RINVOQ [Suspect]
     Active Substance: UPADACITINIB
     Indication: Rheumatoid arthritis
     Dosage: STRENGTH:15 MG, LAST ADMINISTRATION IN 2023
     Route: 058
     Dates: start: 20230925
  2. RINVOQ [Suspect]
     Active Substance: UPADACITINIB
     Indication: Rheumatoid arthritis
     Dosage: STRENGTH:15 MG
     Route: 058

REACTIONS (8)
  - Mitral valve incompetence [Unknown]
  - Device issue [Unknown]
  - Constipation [Recovered/Resolved]
  - Device dislocation [Unknown]
  - Pain [Unknown]
  - Dyspnoea [Recovered/Resolved]
  - Pain in extremity [Recovered/Resolved]
  - Faeces soft [Unknown]

NARRATIVE: CASE EVENT DATE: 20240101
